FAERS Safety Report 8343977-4 (Version None)
Quarter: 2012Q2

REPORT INFORMATION
  Report Type: 
  Country: None (occurrence: None)
  Receive Date: 20120508
  Receipt Date: 20120503
  Transmission Date: 20120825
  Serious: Yes (Death, Life-Threatening, Hospitalization)
  Sender: FDA-Public Use
  Company Number: NL-ASTRAZENECA-2012SE28061

PATIENT
  Age: 25004 Day
  Sex: Male

DRUGS (7)
  1. FINASTERIDE AUROBINDO [Concomitant]
     Indication: BENIGN PROSTATIC HYPERPLASIA
     Route: 048
     Dates: end: 20120425
  2. ASPIRIN [Concomitant]
     Route: 048
     Dates: end: 20120425
  3. PANTOPRAZOLE [Concomitant]
     Indication: HYPERCHLORHYDRIA
     Route: 048
  4. SIMVASTATIN [Concomitant]
     Indication: HYPERCHOLESTEROLAEMIA
     Route: 048
     Dates: end: 20120425
  5. AZD6140 [Suspect]
     Indication: CORONARY ARTERY DISEASE
     Route: 048
     Dates: start: 20110701, end: 20120425
  6. ZOFIL [Concomitant]
     Indication: CORONARY ARTERY DISEASE
     Route: 048
  7. METOPROLOL TARTRATE [Concomitant]
     Indication: HYPERTENSION
     Route: 048
     Dates: end: 20120423

REACTIONS (4)
  - DYSPNOEA [None]
  - GASTRIC ULCER [None]
  - ANURIA [None]
  - ILIAC ARTERY OCCLUSION [None]
